FAERS Safety Report 14750831 (Version 3)
Quarter: 2019Q2

REPORT INFORMATION
  Report Type: Spontaneous
  Country: US (occurrence: US)
  Receive Date: 20180412
  Receipt Date: 20190606
  Transmission Date: 20190711
  Serious: Yes (Hospitalization, Other)
  Sender: FDA-Public Use
  Company Number: US-PROCTER_AND_GAMBLE-GS18042086

PATIENT
  Age: 62 Year
  Sex: Female

DRUGS (9)
  1. LEVOTHYROXINE. [Concomitant]
     Active Substance: LEVOTHYROXINE
  2. RIFAXIMIN. [Concomitant]
     Active Substance: RIFAXIMIN
  3. PEPTO-BISMOL [Suspect]
     Active Substance: BISMUTH SUBSALICYLATE
     Indication: DIARRHOEA
     Dosage: 8.3 G DAILY OVER THE 5 DAYS PRIOR; HALF A BOTTLE A DAY
     Route: 048
  4. SPIRONOLACTONE. [Concomitant]
     Active Substance: SPIRONOLACTONE
  5. ERGOCALCIFEROL. [Concomitant]
     Active Substance: ERGOCALCIFEROL
  6. FUROSEMIDE. [Concomitant]
     Active Substance: FUROSEMIDE
  7. PROPRANOLOL [Concomitant]
     Active Substance: PROPRANOLOL HYDROCHLORIDE
  8. ALENDRONATE [Concomitant]
     Active Substance: ALENDRONATE SODIUM
  9. ZOLPIDEM [Concomitant]
     Active Substance: ZOLPIDEM\ZOLPIDEM TARTRATE

REACTIONS (32)
  - Blood bicarbonate decreased [Unknown]
  - Activated partial thromboplastin time prolonged [Unknown]
  - International normalised ratio increased [Recovered/Resolved]
  - Blood potassium increased [Unknown]
  - Drug ineffective [Unknown]
  - Diarrhoea [Recovered/Resolved]
  - Overdose [Unknown]
  - Blunted affect [Recovered/Resolved]
  - Coagulopathy [Unknown]
  - Incorrect product administration duration [Unknown]
  - Blood pressure systolic increased [Unknown]
  - Blood sodium decreased [Unknown]
  - Haemolysis [Unknown]
  - Aspartate aminotransferase increased [Unknown]
  - Blood alkaline phosphatase increased [Unknown]
  - Disorientation [Recovered/Resolved]
  - Mood altered [Recovered/Resolved]
  - Blood chloride decreased [Unknown]
  - Drug level increased [Unknown]
  - PCO2 decreased [Unknown]
  - Coagulation factor V level decreased [Unknown]
  - Toxicity to various agents [Unknown]
  - Blood creatine increased [Unknown]
  - Blood lactic acid decreased [Unknown]
  - Blood albumin decreased [Unknown]
  - Electrocardiogram T wave inversion [Unknown]
  - Confusional state [Recovered/Resolved]
  - Analgesic drug level increased [Recovered/Resolved]
  - Prothrombin time prolonged [Unknown]
  - Mucosal dryness [Unknown]
  - Blood urea increased [Unknown]
  - Anion gap increased [Unknown]
